FAERS Safety Report 7470923-8 (Version None)
Quarter: 2011Q2

REPORT INFORMATION
  Report Type: 
  Country: None (occurrence: None)
  Receive Date: 20110428
  Receipt Date: 20110412
  Transmission Date: 20111010
  Serious: Yes (Death, Other)
  Sender: FDA-Public Use
  Company Number: 2010PROUSA00021

PATIENT
  Age: 78 Year
  Sex: Male
  Weight: 70.3 kg

DRUGS (8)
  1. CARDIZEM [Concomitant]
  2. LUPRON [Concomitant]
  3. PROVENGE [Suspect]
     Indication: PROSTATE CANCER METASTATIC
     Dosage: 250 ML, SINGLE; INTRAVENOUS
     Route: 042
     Dates: start: 20100729, end: 20100729
  4. PROVENGE [Suspect]
     Indication: PROSTATE CANCER METASTATIC
     Dosage: 250 ML, SINGLE; INTRAVENOUS
     Route: 042
     Dates: start: 20100715, end: 20100715
  5. PROVENGE [Suspect]
     Indication: PROSTATE CANCER METASTATIC
     Dosage: 250 ML, SINGLE; INTRAVENOUS
     Route: 042
     Dates: start: 20100701, end: 20100701
  6. TENORMIN [Concomitant]
  7. OXYCODONE HCL [Concomitant]
  8. OXYCONTIN [Concomitant]

REACTIONS (36)
  - IDIOSYNCRATIC DRUG REACTION [None]
  - ATRIAL FIBRILLATION [None]
  - DYSPNOEA EXERTIONAL [None]
  - MUSCULAR WEAKNESS [None]
  - JOINT RANGE OF MOTION DECREASED [None]
  - FLAT AFFECT [None]
  - DEPRESSION [None]
  - NEUROPATHY PERIPHERAL [None]
  - NOCTURIA [None]
  - CONVULSION [None]
  - DYSKINESIA OESOPHAGEAL [None]
  - WEIGHT DECREASED [None]
  - VOMITING [None]
  - DYSPHAGIA [None]
  - PALPITATIONS [None]
  - COGNITIVE DISORDER [None]
  - DISORIENTATION [None]
  - DYSARTHRIA [None]
  - HYPOPHAGIA [None]
  - FATIGUE [None]
  - CHILLS [None]
  - DEHYDRATION [None]
  - RECTAL HAEMORRHAGE [None]
  - NAUSEA [None]
  - PAIN IN EXTREMITY [None]
  - BALANCE DISORDER [None]
  - HYPONATRAEMIA [None]
  - DECREASED APPETITE [None]
  - FALL [None]
  - HAEMATURIA [None]
  - SENSORY LOSS [None]
  - COLONIC POLYP [None]
  - ADVERSE EVENT FOLLOWING IMMUNISATION [None]
  - DYSPEPSIA [None]
  - CONSTIPATION [None]
  - CONFUSIONAL STATE [None]
